FAERS Safety Report 14170017 (Version 1)
Quarter: 2017Q4

REPORT INFORMATION
  Report Type: Spontaneous
  Country: US (occurrence: US)
  Receive Date: 20171108
  Receipt Date: 20171108
  Transmission Date: 20180321
  Serious: Yes (Other)
  Sender: FDA-Public Use
  Company Number: US-TEVA-822297ACC

PATIENT
  Age: 20 Year
  Sex: Female
  Weight: 70.82 kg

DRUGS (1)
  1. PARAGARD T 380A [Suspect]
     Active Substance: COPPER
     Indication: CONTRACEPTION
     Dates: start: 20170425

REACTIONS (2)
  - Device dislocation [Not Recovered/Not Resolved]
  - Coital bleeding [Unknown]

NARRATIVE: CASE EVENT DATE: 20171018
